FAERS Safety Report 5931155-5 (Version None)
Quarter: 2008Q4

REPORT INFORMATION
  Report Type: 
  Country: None (occurrence: None)
  Receive Date: 20081027
  Receipt Date: 20081017
  Transmission Date: 20090506
  Serious: Yes (Other)
  Sender: FDA-Public Use
  Company Number: PHHY2008CA25260

PATIENT
  Sex: Male

DRUGS (7)
  1. DIOVAN [Suspect]
     Indication: HYPERTENSION
     Dosage: 80 MG, QD
     Dates: start: 20080501
  2. METFORMIN HYDROCHLORIDE [Concomitant]
  3. GLYBURIDE [Concomitant]
  4. ALLOPURINOL [Concomitant]
  5. HYTRIN [Concomitant]
  6. ADALAT CC [Concomitant]
  7. FLUVOXAMINE MALEATE [Concomitant]

REACTIONS (1)
  - SCOTOMA [None]
